FAERS Safety Report 9039137 (Version 1)
Quarter: 2013Q1

REPORT INFORMATION
  Report Type: Report from Study
  Country: US (occurrence: US)
  Receive Date: 20130129
  Receipt Date: 20130129
  Transmission Date: 20140127
  Serious: No
  Sender: FDA-Public Use
  Company Number: US-ABBOTT-12P-163-0930499-00

PATIENT
  Age: 36 Year
  Sex: Female

DRUGS (11)
  1. HUMIRA 40 MG/0.8 ML PEN [Suspect]
     Indication: CROHN^S DISEASE
     Dates: start: 2010
  2. HUMIRA 40 MG/0.8 ML PEN [Suspect]
     Dates: start: 201202
  3. INVEGA [Concomitant]
     Indication: BIPOLAR DISORDER
  4. SINGULAIR [Concomitant]
     Indication: ASTHMA
  5. SINGULAIR [Concomitant]
     Indication: HYPERSENSITIVITY
  6. LASIX [Concomitant]
     Indication: SWELLING
  7. XANAX [Concomitant]
     Indication: ANXIETY
  8. CELEXA [Concomitant]
     Indication: BIPOLAR DISORDER
  9. ENTOCORT [Concomitant]
     Indication: CROHN^S DISEASE
  10. PREVACID [Concomitant]
     Indication: GASTROOESOPHAGEAL REFLUX DISEASE
  11. CLOBETASOL [Concomitant]
     Indication: PSORIASIS

REACTIONS (3)
  - Crohn^s disease [Not Recovered/Not Resolved]
  - Pain [Not Recovered/Not Resolved]
  - Diarrhoea [Not Recovered/Not Resolved]
